FAERS Safety Report 9288606 (Version 1)
Quarter: 2013Q2

REPORT INFORMATION
  Report Type: Spontaneous
  Country: US (occurrence: None)
  Receive Date: 20130513
  Receipt Date: 20130513
  Transmission Date: 20140414
  Serious: Yes (Hospitalization)
  Sender: FDA-Public Use
  Company Number: None

PATIENT
  Age: 54 Year
  Sex: Male
  Weight: 96.3 kg

DRUGS (1)
  1. VINORELBINE TARTRATE [Suspect]
     Dates: start: 20121002

REACTIONS (2)
  - Abdominal pain [None]
  - Neutropenia [None]
